FAERS Safety Report 11694053 (Version 1)
Quarter: 2015Q4

REPORT INFORMATION
  Report Type: Spontaneous
  Country: US (occurrence: US)
  Receive Date: 20151103
  Receipt Date: 20151103
  Transmission Date: 20160304
  Serious: Yes (Hospitalization)
  Sender: FDA-Public Use
  Company Number: US-ELI_LILLY_AND_COMPANY-US201510008226

PATIENT
  Age: 52 Year
  Sex: Female

DRUGS (1)
  1. HUMALOG [Suspect]
     Active Substance: INSULIN LISPRO
     Indication: PRODUCT USED FOR UNKNOWN INDICATION
     Route: 058

REACTIONS (12)
  - Visual impairment [Unknown]
  - Contusion [Unknown]
  - Migraine [Unknown]
  - Blood glucose increased [Unknown]
  - Drug hypersensitivity [Unknown]
  - Infusion site irritation [Unknown]
  - Hunger [Unknown]
  - Blood glucose increased [Recovered/Resolved]
  - Device allergy [Unknown]
  - Infusion site infection [Unknown]
  - Skin discolouration [Unknown]
  - Asthenopia [Unknown]

NARRATIVE: CASE EVENT DATE: 2014
